FAERS Safety Report 9915549 (Version 1)
Quarter: 2014Q1

REPORT INFORMATION
  Report Type: Report from Study
  Country: US (occurrence: US)
  Receive Date: 20140221
  Receipt Date: 20140221
  Transmission Date: 20141002
  Serious: Yes (Hospitalization, Other)
  Sender: FDA-Public Use
  Company Number: US-ROCHE-1344308

PATIENT
  Age: 49 Year
  Sex: Male

DRUGS (3)
  1. LUCENTIS [Suspect]
     Indication: DIABETIC RETINAL OEDEMA
     Route: 050
     Dates: start: 20110802, end: 20121023
  2. LUCENTIS [Suspect]
     Indication: DIABETIC RETINOPATHY
     Route: 050
     Dates: start: 20121127
  3. AVASTIN [Suspect]
     Indication: DIABETIC RETINAL OEDEMA
     Route: 065

REACTIONS (20)
  - Tachycardia [Unknown]
  - Thrombosis [Unknown]
  - Pulmonary thrombosis [Unknown]
  - Eye oedema [Unknown]
  - Eye irritation [Unknown]
  - Lacrimation increased [Unknown]
  - Photopsia [Unknown]
  - Vitreous floaters [Unknown]
  - Vision blurred [Unknown]
  - Visual acuity reduced [Unknown]
  - Discomfort [Unknown]
  - Macular ischaemia [Unknown]
  - Headache [Unknown]
  - Eye pain [Unknown]
  - Swelling face [Unknown]
  - Cataract nuclear [Unknown]
  - Vitreous detachment [Unknown]
  - Vitreous floaters [Unknown]
  - Retinal degeneration [Unknown]
  - Off label use [Unknown]
